FAERS Safety Report 14138266 (Version 1)
Quarter: 2017Q4

REPORT INFORMATION
  Report Type: Spontaneous
  Country: FR (occurrence: FR)
  Receive Date: 20171027
  Receipt Date: 20171027
  Transmission Date: 20180321
  Serious: Yes (Other)
  Sender: FDA-Public Use
  Company Number: FR-009507513-1710FRA010625

PATIENT
  Sex: Male

DRUGS (6)
  1. APIDRA [Suspect]
     Active Substance: INSULIN GLULISINE
     Indication: TYPE 2 DIABETES MELLITUS
     Dosage: UNK, IN THE EVENING
  2. BRILIQUE [Concomitant]
     Active Substance: TICAGRELOR
  3. EUCREAS [Concomitant]
     Active Substance: METFORMIN HYDROCHLORIDE\VILDAGLIPTIN
  4. AMAREL [Concomitant]
     Active Substance: GLIMEPIRIDE
  5. INEGY [Suspect]
     Active Substance: EZETIMIBE\SIMVASTATIN
     Dosage: 1 TABLET PER DAY, IN THE EVENING
     Route: 048
  6. TOUJEO [Suspect]
     Active Substance: INSULIN GLARGINE
     Indication: TYPE 2 DIABETES MELLITUS
     Dosage: UNK,  IN THE EVENING

REACTIONS (3)
  - Vascular graft [Unknown]
  - Blood glucose increased [Unknown]
  - Type 2 diabetes mellitus [Unknown]
